FAERS Safety Report 5359590-7 (Version None)
Quarter: 2007Q2

REPORT INFORMATION
  Report Type: 
  Country: None (occurrence: None)
  Receive Date: 20070530
  Receipt Date: 20061027
  Transmission Date: 20071010
  Serious: Yes (Hospitalization, Other)
  Sender: FDA-Public Use
  Company Number: US200606002811

PATIENT
  Sex: Male
  Weight: 81.6 kg

DRUGS (1)
  1. ZYPREXA [Suspect]
     Indication: BIPOLAR I DISORDER
     Dosage: 15 MG
     Dates: start: 19990101, end: 20020101

REACTIONS (2)
  - DIABETES MELLITUS [None]
  - PANCREATITIS [None]
